FAERS Safety Report 5167673-X (Version None)
Quarter: 2006Q4

REPORT INFORMATION
  Report Type: 
  Country: None (occurrence: None)
  Receive Date: 20061201
  Receipt Date: 20061201
  Transmission Date: 20070319
  Serious: Yes (Other)
  Sender: FDA-Public Use
  Company Number: None

PATIENT
  Age: 60 Year
  Sex: Female

DRUGS (1)
  1. POLYETHYLENE GLYCOL [Suspect]
     Indication: CONSTIPATION
     Dosage: 17 GRAMS DAILY ORALLY
     Route: 048
     Dates: start: 20061122

REACTIONS (8)
  - ANAL DISCOMFORT [None]
  - BURNING SENSATION [None]
  - DRY MOUTH [None]
  - DRY THROAT [None]
  - ERYTHEMA [None]
  - GASTROINTESTINAL DISORDER [None]
  - OEDEMA PERIPHERAL [None]
  - THROAT IRRITATION [None]
